FAERS Safety Report 9365784 (Version 7)
Quarter: 2014Q1

REPORT INFORMATION
  Report Type: Report from Study
  Country: GB (occurrence: GB)
  Receive Date: 20130625
  Receipt Date: 20140214
  Transmission Date: 20141002
  Serious: Yes (Death, Life-Threatening, Hospitalization, Other)
  Sender: FDA-Public Use
  Company Number: GB-JNJFOC-20100701729

PATIENT
  Age: 38 Year
  Sex: Female
  Weight: 53.9 kg

DRUGS (11)
  1. REMICADE [Suspect]
     Indication: COLITIS ULCERATIVE
     Route: 042
     Dates: start: 20100428, end: 20100428
  2. REMICADE [Suspect]
     Indication: COLITIS ULCERATIVE
     Dosage: 3 INFUSIONS ADMINISTERED.??0, 2 AND 6 WEEKS
     Route: 042
     Dates: start: 20100309
  3. SEREVENT INHALER [Concomitant]
     Indication: ASTHMA
     Route: 055
     Dates: start: 2009
  4. FLUOXETINE [Concomitant]
     Indication: DEPRESSION
     Dates: start: 2005
  5. MEZAVANT [Concomitant]
     Indication: COLITIS ULCERATIVE
     Route: 048
     Dates: start: 20080514
  6. QUETIAPINE [Concomitant]
     Indication: PSYCHOTIC DISORDER
     Route: 048
     Dates: start: 20110802
  7. AGOMELATINE [Concomitant]
     Indication: ANTIDEPRESSANT THERAPY
     Route: 048
     Dates: start: 201009
  8. OMEPRAZOLE [Concomitant]
     Indication: HYPERCHLORHYDRIA
     Route: 048
     Dates: start: 20091201
  9. DIAZEPAM [Concomitant]
     Indication: ANXIETY
     Route: 065
  10. TACROLIMUS [Concomitant]
     Indication: COLITIS ULCERATIVE
     Route: 048
     Dates: start: 20101023, end: 20110402
  11. PREDNISOLONE [Concomitant]
     Indication: COLITIS ULCERATIVE
     Route: 048
     Dates: start: 20110313, end: 20110424

REACTIONS (6)
  - Colitis ulcerative [Not Recovered/Not Resolved]
  - Catheter site inflammation [Recovered/Resolved]
  - Depression [Recovered/Resolved]
  - Suicide attempt [Recovering/Resolving]
  - Completed suicide [Fatal]
  - Colectomy [Recovered/Resolved]
